FAERS Safety Report 24349167 (Version 1)
Quarter: 2024Q3

REPORT INFORMATION
  Report Type: Spontaneous
  Country: NL (occurrence: NL)
  Receive Date: 20240923
  Receipt Date: 20240923
  Transmission Date: 20241017
  Serious: Yes (Death, Life-Threatening, Other)
  Sender: AMGEN
  Company Number: NL-AMGEN-NLDSP2024184006

PATIENT

DRUGS (7)
  1. FILGRASTIM [Suspect]
     Active Substance: FILGRASTIM
     Indication: Allogenic stem cell transplantation
     Dosage: 5 MICROGRAM/KILOGRAM, QD (WAS STARTED ON DAY +5 UNTIL NEUTROPHIL RECOVERY)
     Route: 065
  2. MYCOPHENOLIC ACID [Concomitant]
     Active Substance: MYCOPHENOLIC ACID
     Indication: Prophylaxis
     Dosage: 15 MILLIGRAM/KILOGRAM, TID (BETWEEN DAY +5 AND +28)
     Route: 065
  3. TACROLIMUS [Concomitant]
     Active Substance: TACROLIMUS
     Indication: Prophylaxis
     Dosage: 0.04 MILLIGRAM/KILOGRAM, BID (STARTING ON DAY + 5)
     Route: 065
  4. CYCLOPHOSPHAMIDE [Concomitant]
     Active Substance: CYCLOPHOSPHAMIDE
     Dosage: 40 MILLIGRAM/KILOGRAM (TWICE ADMINISTERED 72 AND 96 HOUR AFTER SCT (STEM CELL TRANSPLANTATION))
     Route: 065
  5. THIOTEPA [Concomitant]
     Active Substance: THIOTEPA
  6. BUSULFAN [Concomitant]
     Active Substance: BUSULFAN
  7. FLUDARABINE [Concomitant]
     Active Substance: FLUDARABINE PHOSPHATE

REACTIONS (2)
  - Multiple organ dysfunction syndrome [Fatal]
  - Cytokine release syndrome [Unknown]
